FAERS Safety Report 4824130-5 (Version None)
Quarter: 2005Q4

REPORT INFORMATION
  Report Type: 
  Country: None (occurrence: None)
  Receive Date: 20051108
  Receipt Date: 20051024
  Transmission Date: 20060501
  Serious: Yes (Other)
  Sender: FDA-Public Use
  Company Number: USA0510111727

PATIENT
  Age: 70 Year
  Sex: Male

DRUGS (1)
  1. ZYPREXA [Suspect]
     Indication: HALLUCINATION
     Dosage: 2.5 MG

REACTIONS (4)
  - BLADDER CANCER [None]
  - CEREBROVASCULAR ACCIDENT [None]
  - HEART RATE IRREGULAR [None]
  - TREATMENT NONCOMPLIANCE [None]
